FAERS Safety Report 13629447 (Version 1)
Quarter: 2017Q2

REPORT INFORMATION
  Report Type: Spontaneous
  Country: US (occurrence: US)
  Receive Date: 20170531
  Receipt Date: 20170531
  Transmission Date: 20170830
  Serious: No
  Sender: FDA-Public Use
  Company Number: US-ASTELLAS-1188106

PATIENT
  Sex: Female

DRUGS (1)
  1. TARCEVA [Suspect]
     Active Substance: ERLOTINIB HYDROCHLORIDE
     Indication: PRODUCT USED FOR UNKNOWN INDICATION
     Route: 065

REACTIONS (8)
  - Eye irritation [Unknown]
  - Mouth ulceration [Unknown]
  - Rash pruritic [Unknown]
  - Weight decreased [Unknown]
  - Acne [Unknown]
  - Oral pain [Unknown]
  - Skin fissures [Unknown]
  - Rash [Unknown]
